FAERS Safety Report 8005007-3 (Version None)
Quarter: 2011Q4

REPORT INFORMATION
  Report Type: 
  Country: None (occurrence: None)
  Receive Date: 20111223
  Receipt Date: 20111219
  Transmission Date: 20120403
  Serious: Yes (Death)
  Sender: FDA-Public Use
  Company Number: US-PFIZER INC-2011309053

PATIENT
  Age: 58 Year
  Sex: Male

DRUGS (3)
  1. ATENOLOL [Suspect]
     Route: 048
  2. AMLODIPINE BESYLATE [Suspect]
     Route: 048
  3. PHENYTOIN [Suspect]
     Route: 048

REACTIONS (1)
  - COMPLETED SUICIDE [None]
